FAERS Safety Report 7399598-3 (Version None)
Quarter: 2011Q2

REPORT INFORMATION
  Report Type: 
  Country: None (occurrence: None)
  Receive Date: 20110407
  Receipt Date: 20101216
  Transmission Date: 20111010
  Serious: Yes (Hospitalization, Other)
  Sender: FDA-Public Use
  Company Number: US-BAYER-200942157NA

PATIENT
  Sex: Female
  Weight: 82 kg

DRUGS (8)
  1. NSAID'S [Concomitant]
     Dates: start: 20000101
  2. LOVENOX [Concomitant]
     Dosage: UNK UNK, BID
  3. NORMAL SALINE [Concomitant]
  4. LOVENOX [Concomitant]
     Dosage: 160 MG (DAILY DOSE), BID,
  5. YAZ [Suspect]
     Indication: CONTRACEPTION
     Dates: start: 20071201, end: 20071216
  6. FLINTSTONES [Concomitant]
     Dosage: DAILY AS DIRECTED.
  7. CLARITIN [Concomitant]
     Indication: MULTIPLE ALLERGIES
     Dosage: DAILY AS DIRECTED.
  8. LOVENOX [Concomitant]
     Dosage: 160 MG (DAILY DOSE), BID,

REACTIONS (5)
  - DYSPNOEA [None]
  - ASTHENIA [None]
  - PULMONARY EMBOLISM [None]
  - LETHARGY [None]
  - PLEURITIC PAIN [None]
